FAERS Safety Report 19860014 (Version 1)
Quarter: 2021Q3

REPORT INFORMATION
  Report Type: Spontaneous
  Country: US (occurrence: US)
  Receive Date: 20210921
  Receipt Date: 20210921
  Transmission Date: 20211014
  Serious: No
  Sender: FDA-Public Use
  Company Number: None

PATIENT
  Age: 57 Year
  Sex: Male

DRUGS (2)
  1. BUMEX [Suspect]
     Active Substance: BUMETANIDE
  2. AMBRISENTAN [Suspect]
     Active Substance: AMBRISENTAN
     Route: 048

REACTIONS (2)
  - Fluid retention [None]
  - Dehydration [None]

NARRATIVE: CASE EVENT DATE: 20210920
